FAERS Safety Report 16071473 (Version 1)
Quarter: 2019Q2

REPORT INFORMATION
  Report Type: Spontaneous
  Country: US (occurrence: US)
  Receive Date: 20190314
  Receipt Date: 20190314
  Transmission Date: 20190711
  Serious: Yes (Hospitalization, Other)
  Sender: FDA-Public Use
  Company Number: None

PATIENT
  Age: 38 Year
  Sex: Female
  Weight: 123 kg

DRUGS (2)
  1. NUCALA [Suspect]
     Active Substance: MEPOLIZUMAB
     Indication: ASTHMA
     Dosage: ?          OTHER FREQUENCY:Q 4 WEEKS;?
     Route: 058
  2. SYMBICORT 160 MCG [Concomitant]
     Dates: start: 20160301, end: 20190314

REACTIONS (2)
  - Herpes zoster [None]
  - Herpes zoster oticus [None]

NARRATIVE: CASE EVENT DATE: 20190215
